FAERS Safety Report 25834650 (Version 1)
Quarter: 2025Q3

REPORT INFORMATION
  Report Type: Spontaneous
  Country: CA (occurrence: CA)
  Receive Date: 20250923
  Receipt Date: 20250923
  Transmission Date: 20251020
  Serious: Yes (Hospitalization)
  Sender: ROCHE
  Company Number: CA-ROCHE-10000390286

PATIENT
  Sex: Female

DRUGS (3)
  1. OCRELIZUMAB [Suspect]
     Active Substance: OCRELIZUMAB
     Indication: Primary progressive multiple sclerosis
     Route: 042
  2. BACLOFEN [Concomitant]
     Active Substance: BACLOFEN
     Indication: Primary progressive multiple sclerosis
  3. ESCITALOPRAM [Concomitant]
     Active Substance: ESCITALOPRAM OXALATE
     Indication: Primary progressive multiple sclerosis

REACTIONS (1)
  - Anaemia [Unknown]
